FAERS Safety Report 9048919 (Version 1)
Quarter: 2013Q1

REPORT INFORMATION
  Report Type: Report from Study
  Country: JP (occurrence: JP)
  Receive Date: 20130204
  Receipt Date: 20130204
  Transmission Date: 20140127
  Serious: Yes (Hospitalization)
  Sender: FDA-Public Use
  Company Number: JP-SANOFI-AVENTIS-2013SA007639

PATIENT
  Sex: Female
  Weight: 46.5 kg

DRUGS (11)
  1. LANTUS SOLOSTAR [Suspect]
     Indication: TYPE 2 DIABETES MELLITUS
     Dosage: DOSE:6 UNIT(S)
     Route: 058
     Dates: start: 20120706, end: 20120721
  2. SOLOSTAR [Suspect]
     Indication: DEVICE THERAPY
     Dates: start: 20120706, end: 20120721
  3. AMARYL [Concomitant]
     Indication: TYPE 2 DIABETES MELLITUS
     Route: 048
     Dates: end: 20120706
  4. ACTOS /USA/ [Concomitant]
     Indication: TYPE 2 DIABETES MELLITUS
     Route: 048
     Dates: end: 20120706
  5. ALOGLIPTIN BENZOATE [Concomitant]
     Indication: TYPE 2 DIABETES MELLITUS
     Route: 048
     Dates: start: 20120622, end: 20120706
  6. SEIBULE [Concomitant]
     Indication: TYPE 2 DIABETES MELLITUS
     Route: 048
  7. NOVONORM [Concomitant]
     Indication: TYPE 2 DIABETES MELLITUS
     Route: 048
     Dates: start: 20120707
  8. PLAVIX [Concomitant]
     Route: 048
  9. RABEPRAZOLE SODIUM [Concomitant]
     Indication: PROPHYLAXIS
     Route: 048
  10. CRESTOR /UNK/ [Concomitant]
     Route: 048
  11. AMLODIPINE BESILATE [Concomitant]
     Route: 048

REACTIONS (1)
  - Panic attack [Unknown]
